FAERS Safety Report 5494309-0 (Version None)
Quarter: 2007Q4

REPORT INFORMATION
  Report Type: 
  Country: None (occurrence: None)
  Receive Date: 20071015
  Receipt Date: 20070801
  Transmission Date: 20080405
  Serious: No
  Sender: FDA-Public Use
  Company Number: 2007SP002727

PATIENT
  Age: 75 Year
  Sex: Female
  Weight: 81.6475 kg

DRUGS (6)
  1. LUNESTA [Suspect]
     Indication: INSOMNIA
     Dosage: 2 MG; 1X; ORAL; 4MG; ORAL
     Route: 048
     Dates: start: 20070731, end: 20070731
  2. LUNESTA [Suspect]
     Indication: INSOMNIA
     Dosage: 2 MG; 1X; ORAL; 4MG; ORAL
     Route: 048
     Dates: start: 20070801
  3. CYMBALTA [Concomitant]
  4. VITAMINS [Concomitant]
  5. ANTIHYPERTENSIVES [Concomitant]
  6. THYROID THERAPY [Concomitant]

REACTIONS (2)
  - DYSGEUSIA [None]
  - INITIAL INSOMNIA [None]
